FAERS Safety Report 23832099 (Version 1)
Quarter: 2024Q2

REPORT INFORMATION
  Report Type: Spontaneous
  Country: CZ (occurrence: CZ)
  Receive Date: 20240508
  Receipt Date: 20240508
  Transmission Date: 20240716
  Serious: Yes (Other)
  Sender: FDA-Public Use
  Company Number: CZ-BRISTOL-MYERS SQUIBB COMPANY-2024-068598

PATIENT
  Age: 39 Year
  Sex: Male

DRUGS (6)
  1. OPDIVO [Suspect]
     Active Substance: NIVOLUMAB
     Indication: Clear cell renal cell carcinoma
     Dosage: DOSE : 4; FREQ : UNAVAILABLE
     Route: 042
     Dates: start: 202109
  2. OPDIVO [Suspect]
     Active Substance: NIVOLUMAB
     Route: 042
     Dates: start: 202112
  3. OPDIVO [Suspect]
     Active Substance: NIVOLUMAB
     Route: 042
     Dates: start: 202203
  4. OPDIVO [Suspect]
     Active Substance: NIVOLUMAB
     Dates: start: 2023
  5. OPDIVO [Suspect]
     Active Substance: NIVOLUMAB
     Dates: start: 202305
  6. OPDIVO [Suspect]
     Active Substance: NIVOLUMAB
     Dates: start: 20240213

REACTIONS (3)
  - Immune-mediated enterocolitis [Recovering/Resolving]
  - Hepatitis [Recovering/Resolving]
  - Cystitis haemorrhagic [Recovering/Resolving]

NARRATIVE: CASE EVENT DATE: 20230101
